FAERS Safety Report 25325160 (Version 1)
Quarter: 2025Q2

REPORT INFORMATION
  Report Type: Spontaneous
  Country: GB (occurrence: GB)
  Receive Date: 20250516
  Receipt Date: 20250516
  Transmission Date: 20250717
  Serious: Yes (Life-Threatening, Other)
  Sender: ORGANON
  Company Number: None

PATIENT
  Age: 51 Year
  Sex: Female

DRUGS (8)
  1. MONTELUKAST SODIUM [Suspect]
     Active Substance: MONTELUKAST SODIUM
     Indication: Solar urticaria
     Dosage: 10MG OD
  2. METHOTREXATE [Concomitant]
     Active Substance: METHOTREXATE
  3. DOXYCYCLINE [Concomitant]
     Active Substance: DOXYCYCLINE
  4. FOLIC ACID [Concomitant]
     Active Substance: FOLIC ACID
  5. FAMCICLOVIR [Concomitant]
     Active Substance: FAMCICLOVIR
  6. CITALOPRAM [Concomitant]
     Active Substance: CITALOPRAM
  7. AMLODIPINE [Concomitant]
     Active Substance: AMLODIPINE BESYLATE
  8. VITAMIN D NOS [Concomitant]
     Active Substance: CHOLECALCIFEROL\ERGOCALCIFEROL

REACTIONS (2)
  - Suicide attempt [Recovering/Resolving]
  - Product use in unapproved indication [Unknown]
